FAERS Safety Report 7009249-5 (Version None)
Quarter: 2010Q3

REPORT INFORMATION
  Report Type: 
  Country: None (occurrence: None)
  Receive Date: 20100923
  Receipt Date: 20100910
  Transmission Date: 20110219
  Serious: Yes (Hospitalization)
  Sender: FDA-Public Use
  Company Number: US-SANOFI-AVENTIS-2010SA056535

PATIENT
  Age: 54 Year
  Sex: Male

DRUGS (8)
  1. ARAVA [Suspect]
     Route: 048
     Dates: start: 20070611, end: 20070614
  2. ARAVA [Suspect]
     Route: 048
     Dates: start: 20070615, end: 20070723
  3. PLAQUENIL [Suspect]
     Route: 065
     Dates: start: 20070611
  4. IPRATROPIUM BROMIDE/SALBUTAMOL SULFATE [Concomitant]
     Dates: start: 20000901
  5. ATENOLOL [Concomitant]
  6. LISINOPRIL [Concomitant]
     Dates: start: 20010101
  7. METRONIDAZOLE [Concomitant]
     Dates: start: 20070401
  8. PREDNISONE [Concomitant]
     Dates: start: 20070528

REACTIONS (8)
  - ASCITES [None]
  - ASTHENIA [None]
  - FATIGUE [None]
  - HEPATITIS [None]
  - HEPATOTOXICITY [None]
  - JAUNDICE [None]
  - LIVER FUNCTION TEST ABNORMAL [None]
  - MALAISE [None]
